FAERS Safety Report 23808003 (Version 3)
Quarter: 2024Q3

REPORT INFORMATION
  Report Type: Report from Study
  Country: ES (occurrence: ES)
  Receive Date: 20240502
  Receipt Date: 20240726
  Transmission Date: 20241016
  Serious: Yes (Other)
  Sender: NOVARTIS
  Company Number: ES-002147023-NVSC2024ES087466

PATIENT
  Age: 3 Year
  Sex: Female

DRUGS (1)
  1. VIJOICE [Suspect]
     Active Substance: ALPELISIB
     Indication: PIK3CA related overgrowth spectrum
     Dosage: 100 MG
     Route: 048
     Dates: start: 20210203

REACTIONS (3)
  - Growth retardation [Recovered/Resolved]
  - Alopecia [Recovered/Resolved]
  - Hyperinsulinaemia [Recovered/Resolved]

NARRATIVE: CASE EVENT DATE: 20210421
